FAERS Safety Report 4708759-0 (Version None)
Quarter: 2005Q3

REPORT INFORMATION
  Report Type: 
  Country: None (occurrence: None)
  Receive Date: 20050705
  Receipt Date: 20050627
  Transmission Date: 20060218
  Serious: Yes (Hospitalization)
  Sender: FDA-Public Use
  Company Number: 2005093752

PATIENT
  Age: 55 Year
  Sex: Female

DRUGS (1)
  1. CELEBREX [Suspect]
     Indication: OSTEOARTHRITIS
     Dosage: 200 MG (200 MG) ORAL
     Route: 048
     Dates: end: 20050605

REACTIONS (6)
  - DYSPNOEA [None]
  - GENERALISED ERYTHEMA [None]
  - OBSTRUCTION [None]
  - OEDEMA MOUTH [None]
  - PRURITUS [None]
  - SWOLLEN TONGUE [None]
